FAERS Safety Report 12480787 (Version 3)
Quarter: 2016Q3

REPORT INFORMATION
  Report Type: Spontaneous
  Country: CZ (occurrence: CZ)
  Receive Date: 20160620
  Receipt Date: 20160715
  Transmission Date: 20161109
  Serious: Yes (Life-Threatening, Hospitalization, Other)
  Sender: FDA-Public Use
  Company Number: CZ-PFIZER INC-2016300751

PATIENT
  Age: 29 Year
  Sex: Male
  Weight: 102 kg

DRUGS (2)
  1. DALACIN [Suspect]
     Active Substance: CLINDAMYCIN\CLINDAMYCIN PHOSPHATE
     Indication: DENTAL CARE
     Dosage: 300 MG, 3X/DAY
     Route: 048
     Dates: start: 20160520, end: 20160527
  2. AULIN [Suspect]
     Active Substance: NIMESULIDE
     Indication: PROCEDURAL PAIN
     Dosage: 100 MG, 3X/DAY
     Route: 048
     Dates: start: 20160602, end: 20160602

REACTIONS (2)
  - Dyspnoea [Recovered/Resolved]
  - Urticaria [Recovered/Resolved]

NARRATIVE: CASE EVENT DATE: 20160602
